FAERS Safety Report 6504409-1 (Version None)
Quarter: 2009Q4

REPORT INFORMATION
  Report Type: 
  Country: None (occurrence: None)
  Receive Date: 20091215
  Receipt Date: 20091208
  Transmission Date: 20100525
  Serious: Yes (Death)
  Sender: FDA-Public Use
  Company Number: 2009AL007657

PATIENT
  Age: 36 Year
  Sex: Male

DRUGS (6)
  1. BUPROPION HCL [Suspect]
     Dosage: X1
  2. IBUPROFEN [Suspect]
     Dosage: X1
  3. METOPROLOL TARTRATE [Concomitant]
  4. LAMOTRIGINE [Concomitant]
  5. VALPROIC ACID [Concomitant]
  6. DIPHENHYDRAMINE HCL [Concomitant]

REACTIONS (5)
  - APNOEA [None]
  - CONVULSION [None]
  - DRUG LEVEL INCREASED [None]
  - MULTIPLE DRUG OVERDOSE INTENTIONAL [None]
  - RESUSCITATION [None]
